FAERS Safety Report 5400113-1 (Version None)
Quarter: 2007Q3

REPORT INFORMATION
  Report Type: 
  Country: None (occurrence: None)
  Receive Date: 20070730
  Receipt Date: 20070725
  Transmission Date: 20080115
  Serious: Yes (Hospitalization)
  Sender: FDA-Public Use
  Company Number: JP-BRISTOL-MYERS SQUIBB COMPANY-13842067

PATIENT
  Age: 59 Year
  Sex: Female

DRUGS (16)
  1. ABATACEPT [Suspect]
     Indication: RHEUMATOID ARTHRITIS
     Route: 041
     Dates: start: 20070614
  2. METOLATE [Concomitant]
     Indication: RHEUMATOID ARTHRITIS
     Route: 048
     Dates: start: 20060420
  3. PREDONINE [Concomitant]
     Indication: RHEUMATOID ARTHRITIS
     Route: 048
     Dates: start: 20050707
  4. FOLIAMIN [Concomitant]
     Indication: PROPHYLAXIS
     Route: 048
     Dates: start: 20060327
  5. RISEDRONATE SODIUM [Concomitant]
     Indication: OSTEOPOROSIS
     Route: 048
     Dates: start: 20050426
  6. MILTAX [Concomitant]
     Indication: RHEUMATOID ARTHRITIS
     Dates: start: 20070529
  7. SELBEX [Concomitant]
     Indication: GASTRITIS
     Route: 048
     Dates: start: 20070220
  8. OMEPRAZOLE [Concomitant]
     Indication: GASTRITIS
     Route: 048
     Dates: start: 20070309
  9. EURAX [Concomitant]
     Indication: URTICARIA CHRONIC
     Route: 061
     Dates: start: 20070422
  10. ALLEGRA [Concomitant]
     Indication: URTICARIA CHRONIC
     Route: 048
     Dates: start: 20070529
  11. RINDERON-VG [Concomitant]
     Indication: URTICARIA CHRONIC
     Route: 061
     Dates: start: 20070529
  12. CYANOCOBALAMIN [Concomitant]
     Indication: ASTHENOPIA
     Route: 047
     Dates: start: 20031114
  13. MYCOSPOR [Concomitant]
     Indication: NAIL TINEA
     Route: 061
     Dates: start: 20031114
  14. PENTOIL [Concomitant]
     Indication: RHEUMATOID ARTHRITIS
     Route: 048
     Dates: start: 20070615
  15. CYANOCOBALAMINE [Concomitant]
     Indication: ASTHENOPIA
     Route: 047
     Dates: start: 20031114
  16. SANCOBA [Concomitant]
     Indication: ASTHENOPIA
     Route: 047
     Dates: start: 20031114

REACTIONS (1)
  - THORACIC VERTEBRAL FRACTURE [None]
